FAERS Safety Report 4869876-8 (Version None)
Quarter: 2005Q4

REPORT INFORMATION
  Report Type: 
  Country: None (occurrence: None)
  Receive Date: 20051230
  Receipt Date: 20051222
  Transmission Date: 20060501
  Serious: Yes (Hospitalization)
  Sender: FDA-Public Use
  Company Number: FR-MERCK-0512FRA00088

PATIENT
  Age: 17 Year
  Sex: Female

DRUGS (7)
  1. SINGULAIR [Suspect]
     Indication: ASTHMA
     Route: 048
     Dates: start: 20030101, end: 20040101
  2. SINGULAIR [Suspect]
     Route: 048
     Dates: start: 20040101, end: 20040101
  3. SINGULAIR [Suspect]
     Route: 048
     Dates: start: 20040101, end: 20051222
  4. SINGULAIR [Suspect]
     Route: 048
     Dates: start: 20051223
  5. THEOPHYLLINE [Concomitant]
     Indication: ASTHMA
     Route: 048
  6. CORTICOSTEROIDS (UNSPECIFIED) [Concomitant]
     Indication: ASTHMA
     Route: 055
  7. [THERAPY UNSPECIFIED] [Concomitant]
     Indication: ASTHMA
     Route: 055

REACTIONS (5)
  - DRUG EXPOSURE DURING PREGNANCY [None]
  - DYSARTHRIA [None]
  - PREGNANCY [None]
  - PRESCRIBED OVERDOSE [None]
  - TRANSIENT ISCHAEMIC ATTACK [None]
